FAERS Safety Report 8885845 (Version 1)
Quarter: 2012Q4

REPORT INFORMATION
  Report Type: 
  Country: DK (occurrence: GB)
  Receive Date: 20121105
  Receipt Date: 20121105
  Transmission Date: 20130627
  Serious: Yes (Hospitalization)
  Sender: FDA-Public Use
  Company Number: GB-FRI-1000040061

PATIENT
  Age: 44 Year
  Sex: Female

DRUGS (4)
  1. CITALOPRAM [Suspect]
     Indication: DEPRESSION
     Dosage: 20 mg
     Route: 048
     Dates: start: 20120731, end: 20120913
  2. ERYTHROMYCIN [Concomitant]
     Dates: start: 20120906
  3. PROPRANOLOL [Concomitant]
  4. CILEST [Concomitant]

REACTIONS (3)
  - Cerebral vasoconstriction [Recovering/Resolving]
  - Headache [Unknown]
  - Cough [Unknown]
